FAERS Safety Report 11475117 (Version 2)
Quarter: 2015Q3

REPORT INFORMATION
  Report Type: Spontaneous
  Country: US (occurrence: US)
  Receive Date: 20150908
  Receipt Date: 20150921
  Transmission Date: 20151125
  Serious: No
  Sender: FDA-Public Use
  Company Number: ALCN2015US005470

PATIENT
  Sex: Female

DRUGS (1)
  1. SYSTANE (HYPROMELLOSE 2910 (4000 MPA.S)) [Suspect]
     Active Substance: HYPROMELLOSE 2910 (4000 MPA.S)
     Indication: DRY EYE
     Dosage: 1 GTT, UNK
     Route: 047

REACTIONS (3)
  - Drug ineffective [Not Recovered/Not Resolved]
  - Foreign body sensation in eyes [Unknown]
  - Vision blurred [Unknown]
